FAERS Safety Report 20170121 (Version 2)
Quarter: 2021Q4

REPORT INFORMATION
  Report Type: Spontaneous
  Country: CN (occurrence: CN)
  Receive Date: 20211210
  Receipt Date: 20211222
  Transmission Date: 20220303
  Serious: Yes (Other)
  Sender: FDA-Public Use
  Company Number: CN-NOVARTISPH-NVSC2021CN256270

PATIENT
  Age: 68 Year
  Sex: Female
  Weight: 165 kg

DRUGS (3)
  1. LOTENSIN [Suspect]
     Active Substance: BENAZEPRIL HYDROCHLORIDE
     Indication: Hypertension
     Dosage: 1 DOSAGE FORM, BID (1 TABLET AT 6 AM AND 1 TABLET AT 15 PM)
     Route: 048
  2. LOTENSIN [Suspect]
     Active Substance: BENAZEPRIL HYDROCHLORIDE
     Dosage: 1 DOSAGE FORM, BID (1 TABLET IN MORNING AND 1 IN EVENING)
     Route: 048
     Dates: start: 202109
  3. NORVASC [Concomitant]
     Active Substance: AMLODIPINE BESYLATE
     Indication: Product used for unknown indication
     Dosage: 1 DOSAGE FORM QD (1 TABLET IN MORNING)
     Route: 048

REACTIONS (4)
  - Blood pressure systolic increased [Recovering/Resolving]
  - Blood pressure abnormal [Recovering/Resolving]
  - Suspected counterfeit product [Unknown]
  - Drug ineffective [Recovering/Resolving]
